FAERS Safety Report 9073066 (Version 1)
Quarter: 2013Q1

REPORT INFORMATION
  Report Type: Report from Study
  Country: US (occurrence: US)
  Receive Date: 20130129
  Receipt Date: 20130129
  Transmission Date: 20140127
  Serious: No
  Sender: FDA-Public Use
  Company Number: US-ABBOTT-12P-163-0921431-00

PATIENT
  Age: 26 Year
  Sex: Female

DRUGS (2)
  1. HUMIRA 40 MG/0.8 ML PEN [Suspect]
     Indication: PSORIASIS
     Dates: start: 20120204
  2. HUMIRA 40 MG/0.8 ML PEN [Suspect]
     Dates: start: 20120505

REACTIONS (2)
  - Rash papular [Not Recovered/Not Resolved]
  - Drug ineffective [Recovering/Resolving]
